FAERS Safety Report 7619614-0 (Version None)
Quarter: 2011Q3

REPORT INFORMATION
  Report Type: 
  Country: None (occurrence: None)
  Receive Date: 20110719
  Receipt Date: 20081205
  Transmission Date: 20111222
  Serious: Yes (Other)
  Sender: FDA-Public Use
  Company Number: US-BAYER-200839698NA

PATIENT
  Age: 54 Year
  Sex: Male
  Weight: 103 kg

DRUGS (16)
  1. ACETYLSALICYLIC ACID SRT [Concomitant]
  2. VERSED [Concomitant]
     Dosage: UNK
     Dates: start: 20060810
  3. NITROGLYCERIN [Concomitant]
     Dosage: UNK
     Dates: start: 20060810
  4. HEPARIN [Concomitant]
     Dosage: UNK
     Dates: start: 20060810
  5. TRASYLOL [Suspect]
     Dosage: 200 ML, ONCE, LOADING DOSE
     Route: 042
     Dates: start: 20060810, end: 20060810
  6. DIOVAN [Concomitant]
  7. TRASYLOL [Suspect]
     Dosage: 50 CC/HR INFUSION
     Route: 042
     Dates: start: 20060810, end: 20060810
  8. ISOVUE-128 [Concomitant]
     Indication: CATHETERISATION CARDIAC
     Dosage: UNK
     Dates: start: 20060809
  9. TRASYLOL [Suspect]
     Indication: PRODUCT USED FOR UNKNOWN INDICATION
     Dosage: UNK, INITIAL TEST DOSE
     Route: 042
     Dates: start: 20060810, end: 20060810
  10. FENTANYL-100 [Concomitant]
     Dosage: UNK
     Dates: start: 20060810
  11. ANCEF [Concomitant]
     Dosage: 2 G, UNK
     Dates: start: 20060810
  12. PROTAMINE SULFATE [Concomitant]
     Dosage: UNK
     Dates: start: 20060810
  13. VYTORIN [Concomitant]
  14. TOPROL-XL [Concomitant]
  15. NORVASC [Concomitant]
  16. CARDIOPLEGIA [Concomitant]
     Dosage: UNK
     Dates: start: 20060810

REACTIONS (13)
  - EMOTIONAL DISTRESS [None]
  - STRESS [None]
  - ANHEDONIA [None]
  - RENAL IMPAIRMENT [None]
  - PAIN [None]
  - INJURY [None]
  - UNEVALUABLE EVENT [None]
  - RENAL FAILURE [None]
  - ANXIETY [None]
  - FEAR [None]
  - MULTI-ORGAN FAILURE [None]
  - CEREBROVASCULAR ACCIDENT [None]
  - RENAL INJURY [None]
